FAERS Safety Report 9089945 (Version 2)
Quarter: 2013Q2

REPORT INFORMATION
  Report Type: Spontaneous
  Country: US (occurrence: US)
  Receive Date: 20130131
  Receipt Date: 20130403
  Transmission Date: 20140414
  Serious: No
  Sender: FDA-Public Use
  Company Number: US-ASTRAZENECA-2013SE05970

PATIENT
  Age: 74 Year
  Sex: Female
  Weight: 79.8 kg

DRUGS (5)
  1. NEXIUM [Suspect]
     Indication: GASTROOESOPHAGEAL REFLUX DISEASE
     Route: 048
     Dates: start: 201212, end: 20130123
  2. HYDROCHLOROTHIAZIDE [Concomitant]
     Indication: OEDEMA
  3. LOPRESSOR [Concomitant]
     Indication: HYPERTENSION
  4. NORVASC [Concomitant]
     Indication: HYPERTENSION
  5. GUANFACINE [Concomitant]
     Indication: HYPERTENSION

REACTIONS (11)
  - Abdominal distension [Unknown]
  - Dyspnoea exertional [Unknown]
  - Pain [Unknown]
  - Chest discomfort [Unknown]
  - Hypertension [Unknown]
  - Dyspnoea [Unknown]
  - Heart rate increased [Unknown]
  - Diarrhoea [Unknown]
  - Abdominal pain upper [Unknown]
  - Dry mouth [Unknown]
  - Flatulence [Unknown]
